FAERS Safety Report 6011717-X (Version None)
Quarter: 2008Q4

REPORT INFORMATION
  Report Type: 
  Country: None (occurrence: None)
  Receive Date: 20081218
  Receipt Date: 19901114
  Transmission Date: 20090506
  Serious: Yes (Death, Other)
  Sender: FDA-Public Use
  Company Number: AT-ROCHE-900150841001

PATIENT
  Sex: Male
  Weight: 54 kg

DRUGS (4)
  1. INTERFERON ALFA-2A [Suspect]
     Route: 058
     Dates: start: 19900903, end: 19901029
  2. FLUOROURACIL [Suspect]
     Route: 042
     Dates: start: 19900903, end: 19900907
  3. FLUOROURACIL [Suspect]
     Route: 042
     Dates: start: 19900917, end: 19901001
  4. FLUOROURACIL [Suspect]
     Route: 042
     Dates: start: 19901015, end: 19901105

REACTIONS (3)
  - COLORECTAL CANCER [None]
  - DIARRHOEA [None]
  - NEUROTOXICITY [None]
